FAERS Safety Report 16166312 (Version 2)
Quarter: 2019Q2

REPORT INFORMATION
  Report Type: Spontaneous
  Country: US (occurrence: US)
  Receive Date: 20190406
  Receipt Date: 20190409
  Transmission Date: 20190711
  Serious: No
  Sender: FDA-Public Use
  Company Number: US-TEVA-2019-US-1024102

PATIENT
  Age: 42 Year

DRUGS (1)
  1. COPAXONE [Suspect]
     Active Substance: GLATIRAMER ACETATE
     Indication: MULTIPLE SCLEROSIS
     Route: 058
     Dates: start: 20181111

REACTIONS (8)
  - Malaise [Unknown]
  - Sinusitis [Recovering/Resolving]
  - Sneezing [Recovered/Resolved]
  - Asthenia [Recovered/Resolved]
  - Influenza [Unknown]
  - Malaise [Unknown]
  - Cough [Recovered/Resolved]
  - Nasal congestion [Recovered/Resolved]

NARRATIVE: CASE EVENT DATE: 20190308
